FAERS Safety Report 24189446 (Version 1)
Quarter: 2024Q3

REPORT INFORMATION
  Report Type: Spontaneous
  Country: US (occurrence: US)
  Receive Date: 20240808
  Receipt Date: 20240808
  Transmission Date: 20241017
  Serious: No
  Sender: BIOGEN
  Company Number: US-BIOGEN-2020BI00933131

PATIENT
  Sex: Male

DRUGS (6)
  1. TYSABRI [Suspect]
     Active Substance: NATALIZUMAB
     Indication: Multiple sclerosis
     Dosage: INFUSED OVER 1 HOUR
     Route: 050
     Dates: start: 20180302
  2. TYSABRI [Suspect]
     Active Substance: NATALIZUMAB
     Route: 050
  3. VIAGRA [Concomitant]
     Active Substance: SILDENAFIL CITRATE
     Route: 050
  4. VESICARE [Concomitant]
     Active Substance: SOLIFENACIN SUCCINATE
     Route: 050
  5. PRINIVIL [Concomitant]
     Active Substance: LISINOPRIL
     Route: 050
  6. PROVENTIL HFA [Concomitant]
     Active Substance: ALBUTEROL SULFATE
     Indication: Wheezing
     Dosage: INHALE 2 PUFFS AS DIRECTED EVERY 4 HOURS AS NEEDED
     Route: 050

REACTIONS (1)
  - Prescribed underdose [Unknown]
